FAERS Safety Report 6807204-9 (Version None)
Quarter: 2010Q2

REPORT INFORMATION
  Report Type: 
  Country: None (occurrence: None)
  Receive Date: 20100628
  Receipt Date: 20100628
  Transmission Date: 20101027
  Serious: Yes (Hospitalization)
  Sender: FDA-Public Use
  Company Number: None

PATIENT
  Age: 75 Year
  Sex: Female
  Weight: 70.3075 kg

DRUGS (1)
  1. PEG-ASPARAGINASE 3750 UNITS [Suspect]
     Indication: ACUTE LYMPHOCYTIC LEUKAEMIA
     Dosage: 3750 UNITS X1 IV DRIP
     Route: 041
     Dates: start: 20100601, end: 20100601

REACTIONS (1)
  - PANCREATITIS ACUTE [None]
